FAERS Safety Report 8905120 (Version 13)
Quarter: 2014Q1

REPORT INFORMATION
  Report Type: Report from Study
  Country: CA (occurrence: CA)
  Receive Date: 20121112
  Receipt Date: 20140220
  Transmission Date: 20141002
  Serious: Yes (Death, Hospitalization, Other)
  Sender: FDA-Public Use
  Company Number: PHHY2012CA099287

PATIENT
  Age: 53 Year
  Sex: Male

DRUGS (6)
  1. SANDOSTATIN LAR [Suspect]
     Indication: NEUROENDOCRINE TUMOUR
     Dosage: 30 MG, QMO
     Route: 030
     Dates: start: 20120908, end: 20140206
  2. AFINITOR [Suspect]
     Indication: NEUROENDOCRINE TUMOUR
     Dosage: 5 - 10 MG, DAILY ALTERNATING DAYS
     Route: 048
     Dates: start: 20130305
  3. CHEMOTHERAPEUTICS [Concomitant]
     Dosage: UNK UKN, UNK
  4. SUTENT [Concomitant]
     Dosage: 37.5 MG, DAILY
     Dates: end: 20130917
  5. ANTICOAGULANTS [Concomitant]
     Dosage: UNK UKN, UNK
  6. HYDROMORPH CONTIN [Concomitant]
     Dosage: 3 MG, QD (AT BEDTIME)
     Dates: start: 20131015

REACTIONS (23)
  - Death [Fatal]
  - Haematoma [Unknown]
  - Thrombosis [Unknown]
  - Localised infection [Unknown]
  - Bone neoplasm [Unknown]
  - Nerve compression [Unknown]
  - Pain [Unknown]
  - Vascular compression [Unknown]
  - Tumour compression [Unknown]
  - Neoplasm progression [Unknown]
  - Metastases to central nervous system [Unknown]
  - Dysphonia [Unknown]
  - Aphthous stomatitis [Unknown]
  - Dry skin [Unknown]
  - Skin swelling [Unknown]
  - Blood pressure increased [Unknown]
  - Contusion [Unknown]
  - Local swelling [Not Recovered/Not Resolved]
  - Pain in extremity [Unknown]
  - Arthralgia [Unknown]
  - Fatigue [Not Recovered/Not Resolved]
  - Rash [Unknown]
  - Asthenia [Not Recovered/Not Resolved]
